FAERS Safety Report 13851231 (Version 1)
Quarter: 2017Q3

REPORT INFORMATION
  Report Type: Spontaneous
  Country: FR (occurrence: FR)
  Receive Date: 20170809
  Receipt Date: 20170809
  Transmission Date: 20171127
  Serious: Yes (Other)
  Sender: FDA-Public Use
  Company Number: FR-TEVA-792452ROM

PATIENT
  Age: 77 Year
  Sex: Male

DRUGS (2)
  1. PROPRANOLOL [Suspect]
     Active Substance: PROPRANOLOL HYDROCHLORIDE
     Dosage: 40 MILLIGRAM DAILY;
  2. PROPRANOLOL [Suspect]
     Active Substance: PROPRANOLOL HYDROCHLORIDE
     Dosage: 0.5 DF = 20 MILLIGRAMS, DURING ONE WEEK

REACTIONS (5)
  - Hypotension [Unknown]
  - Nausea [Unknown]
  - Headache [Unknown]
  - Adverse event [Unknown]
  - Peripheral nerve injury [Not Recovered/Not Resolved]
